FAERS Safety Report 8559553-4 (Version None)
Quarter: 2012Q3

REPORT INFORMATION
  Report Type: 
  Country: None (occurrence: None)
  Receive Date: 20120802
  Receipt Date: 20120724
  Transmission Date: 20120928
  Serious: Yes (Hospitalization, Disabling, Other)
  Sender: FDA-Public Use
  Company Number: US-009507513-1202USA02912

PATIENT

DRUGS (2)
  1. FOSAMAX [Suspect]
     Dosage: 70 MG, QW
     Route: 048
     Dates: start: 20080726, end: 20090126
  2. FOSAMAX [Suspect]
     Indication: OSTEOPOROSIS
     Dosage: 70 MG, UNK
     Route: 048
     Dates: start: 20030101, end: 20090126

REACTIONS (18)
  - HYPOTHYROIDISM [None]
  - CARDIAC DISORDER [None]
  - LOW TURNOVER OSTEOPATHY [None]
  - MUSCULAR WEAKNESS [None]
  - FALL [None]
  - DUODENITIS [None]
  - HAEMORRHOIDS [None]
  - ANAL POLYP [None]
  - GASTRITIS [None]
  - HYPERCHOLESTEROLAEMIA [None]
  - COLONIC POLYP [None]
  - ARTHROPATHY [None]
  - OSTEOARTHRITIS [None]
  - TOOTH DISORDER [None]
  - DRY EYE [None]
  - DIVERTICULUM [None]
  - FEMUR FRACTURE [None]
  - ANIMAL BITE [None]
